FAERS Safety Report 7669973-8 (Version None)
Quarter: 2011Q3

REPORT INFORMATION
  Report Type: 
  Country: None (occurrence: None)
  Receive Date: 20110808
  Receipt Date: 20110802
  Transmission Date: 20111222
  Serious: Yes (Life-Threatening)
  Sender: FDA-Public Use
  Company Number: PHHY2011NO42937

PATIENT
  Age: 15 Year
  Sex: Female

DRUGS (4)
  1. CISPLATIN [Suspect]
     Indication: BONE SARCOMA
     Dosage: 90 MG/M (48-HOUR CONTINUOUS INFUSION)
  2. METHOTREXATE [Suspect]
     Indication: BONE SARCOMA
     Dosage: 12 G/M (4-HOUR INFUSION)
  3. DOXORUBICIN HCL [Suspect]
     Indication: BONE SARCOMA
     Dosage: 75 MG/M (4-HOUR CONTINUOUS INFUSION)
  4. IFOSFAMIDE [Suspect]
     Indication: BONE SARCOMA
     Dosage: 2 G/M /DAY FOR 5 DAYS

REACTIONS (2)
  - CARDIOTOXICITY [None]
  - CARDIAC FUNCTION DISTURBANCE POSTOPERATIVE [None]
